FAERS Safety Report 5615076-3 (Version None)
Quarter: 2008Q1

REPORT INFORMATION
  Report Type: 
  Country: None (occurrence: None)
  Receive Date: 20080206
  Receipt Date: 20070718
  Transmission Date: 20080703
  Serious: No
  Sender: FDA-Public Use
  Company Number: A0629431A

PATIENT
  Age: 85 Year
  Sex: Male

DRUGS (5)
  1. ARIXTRA [Suspect]
     Indication: DEEP VEIN THROMBOSIS
     Dosage: 7.5MG PER DAY
     Route: 058
     Dates: start: 20061102
  2. ARICEPT [Concomitant]
  3. NAMENDA [Concomitant]
  4. TORSEMIDE [Concomitant]
  5. SPIRIVA [Concomitant]

REACTIONS (5)
  - BLOOD URINE PRESENT [None]
  - INJECTION SITE BRUISING [None]
  - INJECTION SITE DISCOLOURATION [None]
  - PAIN [None]
  - PHARMACEUTICAL PRODUCT COMPLAINT [None]
